FAERS Safety Report 17087095 (Version 1)
Quarter: 2019Q4

REPORT INFORMATION
  Report Type: Report from Study
  Country: US (occurrence: US)
  Receive Date: 20191128
  Receipt Date: 20191128
  Transmission Date: 20200122
  Serious: No
  Sender: FDA-Public Use
  Company Number: US-BEH-2019109701

PATIENT
  Age: 21 Year
  Sex: Female

DRUGS (2)
  1. BERINERT [Suspect]
     Active Substance: HUMAN C1-ESTERASE INHIBITOR
     Indication: HEREDITARY ANGIOEDEMA
     Dosage: 280 INTERNATIONAL UNIT (2X140), PRN
     Route: 058
     Dates: start: 20190924
  2. BERINERT [Suspect]
     Active Substance: HUMAN C1-ESTERASE INHIBITOR
     Indication: HEREDITARY ANGIOEDEMA
     Dosage: 280 INTERNATIONAL UNIT (2X140), PRN
     Route: 058
     Dates: start: 20190924

REACTIONS (2)
  - No adverse event [Unknown]
  - Incorrect route of product administration [Unknown]
